FAERS Safety Report 10064479 (Version 2)
Quarter: 2014Q2

REPORT INFORMATION
  Report Type: Spontaneous
  Country: GB (occurrence: None)
  Receive Date: 20140404
  Receipt Date: 20140414
  Transmission Date: 20141212
  Serious: Yes (Disabling)
  Sender: FDA-Public Use
  Company Number: AUR-APL-2014-04069

PATIENT
  Sex: 0

DRUGS (4)
  1. RAMIPRIL [Suspect]
     Indication: HYPERTENSION
     Route: 048
     Dates: start: 20101001, end: 20110601
  2. AMLODIPINE (AMLODIPINE) [Concomitant]
  3. CHOLINE (CHOLINE) [Concomitant]
  4. FEXOFENADINE (FEXOFENADINE) [Concomitant]

REACTIONS (1)
  - Sinusitis [None]
